FAERS Safety Report 9494052 (Version 1)
Quarter: 2013Q3

REPORT INFORMATION
  Report Type: Spontaneous
  Country: US (occurrence: None)
  Receive Date: 20130829
  Receipt Date: 20130829
  Transmission Date: 20140515
  Serious: Yes (Other)
  Sender: FDA-Public Use
  Company Number: None

PATIENT
  Age: 42 Year
  Sex: Female
  Weight: 117.94 kg

DRUGS (1)
  1. CIPRO ^BAYER^ [Suspect]
     Indication: URINARY TRACT INFECTION
     Dosage: 1PILLS  TWICE DAILY  TAKEN BY MOUTH
     Route: 048
     Dates: start: 20130721, end: 20130724

REACTIONS (2)
  - Arthritis [None]
  - Rash [None]
